FAERS Safety Report 6994706-8 (Version None)
Quarter: 2010Q3

REPORT INFORMATION
  Report Type: 
  Country: None (occurrence: None)
  Receive Date: 20100915
  Receipt Date: 20100913
  Transmission Date: 20110219
  Serious: Yes (Hospitalization, Disabling)
  Sender: FDA-Public Use
  Company Number: SP02933

PATIENT
  Age: 61 Year
  Sex: Female
  Weight: 80.7403 kg

DRUGS (10)
  1. OSMOPREP [Suspect]
     Indication: BOWEL PREPARATION
     Dosage: 20 TABLETS, ORAL
     Route: 048
     Dates: start: 20100523, end: 20100523
  2. LISINOPRIL [Concomitant]
  3. AMLODIPINE [Concomitant]
  4. TRAZODONE HCL [Concomitant]
  5. CLONZAEPAM [Concomitant]
  6. LORAZEPAM [Concomitant]
  7. VENLAFAXINE HCL EXTENDED-RELEASE [Concomitant]
  8. VICODIN [Concomitant]
  9. POTASSIUM (SOLUTION) [Concomitant]
  10. EVISTA [Concomitant]

REACTIONS (10)
  - ABASIA [None]
  - ABDOMINAL PAIN [None]
  - DIARRHOEA [None]
  - DRUG HYPERSENSITIVITY [None]
  - HYPERVENTILATION [None]
  - LOSS OF CONSCIOUSNESS [None]
  - MUSCLE SPASMS [None]
  - RENAL FAILURE [None]
  - TREMOR [None]
  - VOMITING [None]
